FAERS Safety Report 8233570-6 (Version None)
Quarter: 2012Q1

REPORT INFORMATION
  Report Type: 
  Country: None (occurrence: None)
  Receive Date: 20120326
  Receipt Date: 20120312
  Transmission Date: 20120608
  Serious: Yes (Hospitalization, Other)
  Sender: FDA-Public Use
  Company Number: PHHY2009BR070404

PATIENT
  Sex: Female

DRUGS (4)
  1. RASILEZ [Suspect]
     Dosage: 300 MG, UNK
     Route: 048
     Dates: start: 20090101
  2. EXFORGE [Suspect]
     Indication: BLOOD PRESSURE
     Dosage: 1 DF, DAILY
     Dates: start: 20090101
  3. SELOZOL [Concomitant]
     Dosage: 1 DF, DAILY
     Route: 048
  4. RASILEZ [Suspect]
     Indication: CARDIAC DISORDER
     Dosage: 150 MG, UNK
     Route: 048
     Dates: start: 20090101

REACTIONS (3)
  - CARDIAC INFECTION [None]
  - CATARACT [None]
  - TYMPANIC MEMBRANE PERFORATION [None]
